FAERS Safety Report 9452684 (Version 1)
Quarter: 2013Q3

REPORT INFORMATION
  Report Type: Spontaneous
  Country: US (occurrence: US)
  Receive Date: 20130812
  Receipt Date: 20130812
  Transmission Date: 20140515
  Serious: No
  Sender: FDA-Public Use
  Company Number: US-TEVA-424324USA

PATIENT
  Age: 62 Year
  Sex: Female
  Weight: 64.47 kg

DRUGS (2)
  1. AZILECT [Suspect]
     Indication: PARKINSON^S DISEASE
     Route: 048
     Dates: start: 20130802
  2. MULTIVITAMINS [Concomitant]

REACTIONS (2)
  - Tremor [Unknown]
  - Tremor [Unknown]
